FAERS Safety Report 6108079-6 (Version None)
Quarter: 2009Q1

REPORT INFORMATION
  Report Type: 
  Country: None (occurrence: None)
  Receive Date: 20090304
  Receipt Date: 20080226
  Transmission Date: 20090719
  Serious: Yes (Other)
  Sender: FDA-Public Use
  Company Number: US-000335

PATIENT
  Age: 69 Year
  Sex: Female
  Weight: 104 kg

DRUGS (2)
  1. ISOVUE-300 [Suspect]
     Indication: NECK PAIN
     Dosage: 75ML QD INTRAVENOUS
     Route: 042
     Dates: start: 20080226, end: 20080226
  2. CLONAZEPAM [Concomitant]

REACTIONS (2)
  - PANIC ATTACK [None]
  - PULMONARY OEDEMA [None]
